FAERS Safety Report 8476909 (Version 2)
Quarter: 2013Q1

REPORT INFORMATION
  Report Type: Spontaneous
  Country: US (occurrence: US)
  Receive Date: 20120326
  Receipt Date: 20130116
  Transmission Date: 20140127
  Serious: Yes (Hospitalization)
  Sender: FDA-Public Use
  Company Number: CHPA2012US005218

PATIENT
  Sex: Female
  Weight: 51.25 kg

DRUGS (7)
  1. PREVACID 24HR 15MG [Suspect]
     Indication: GASTROINTESTINAL DISORDER
     Dosage: 30 MG, BID
     Route: 048
     Dates: start: 2009
  2. TRAMADOL [Concomitant]
     Indication: PAIN
  3. DRUG THERAPY NOS [Concomitant]
  4. CLORAZEPATE [Concomitant]
  5. OXYBUTYNIN [Concomitant]
     Indication: PAIN
  6. LISINOPRIL [Concomitant]
     Indication: BLOOD PRESSURE
  7. CRESTOR [Concomitant]

REACTIONS (6)
  - Diarrhoea [Recovered/Resolved]
  - Haematochezia [Unknown]
  - Prescribed overdose [Unknown]
  - Off label use [Unknown]
  - Wrong technique in drug usage process [Unknown]
  - Incorrect drug administration duration [Unknown]
